FAERS Safety Report 11117851 (Version 1)
Quarter: 2015Q2

REPORT INFORMATION
  Report Type: Spontaneous
  Country: CN (occurrence: CN)
  Receive Date: 20150518
  Receipt Date: 20150518
  Transmission Date: 20150821
  Serious: Yes (Other)
  Sender: FDA-Public Use
  Company Number: CN-SUN PHARMACEUTICAL INDUSTRIES LTD-2015RR-97332

PATIENT
  Age: 26 Year
  Sex: Female

DRUGS (4)
  1. BUDESONIDE. [Suspect]
     Active Substance: BUDESONIDE
     Indication: OROPHARYNGEAL PAIN
  2. BUDESONIDE. [Suspect]
     Active Substance: BUDESONIDE
     Indication: DYSPHONIA
     Dosage: 1 MG AT A TIME
     Route: 055
  3. CEFUROXIME. [Suspect]
     Active Substance: CEFUROXIME
     Indication: DYSPHONIA
     Dosage: 3 G, BID
     Route: 042
  4. CEFUROXIME. [Suspect]
     Active Substance: CEFUROXIME
     Indication: OROPHARYNGEAL PAIN

REACTIONS (2)
  - Aspergillus infection [Recovered/Resolved]
  - Laryngitis fungal [Recovered/Resolved]
